FAERS Safety Report 4673011-9 (Version None)
Quarter: 2005Q2

REPORT INFORMATION
  Report Type: 
  Country: None (occurrence: None)
  Receive Date: 20050524
  Receipt Date: 20050510
  Transmission Date: 20051028
  Serious: Yes (Hospitalization)
  Sender: FDA-Public Use
  Company Number: 2005S1003367

PATIENT
  Age: 47 Year
  Sex: Female

DRUGS (3)
  1. LEVOTHYROXINE SODIUM [Suspect]
     Indication: HYPOTHYROIDISM
     Dosage: 100 MCG; QD; PO
     Route: 048
     Dates: start: 20050420
  2. ESTROGENS CONJUGATED [Concomitant]
  3. CALCIUM GLUCONATE [Concomitant]

REACTIONS (7)
  - ABDOMINAL PAIN UPPER [None]
  - DYSGEUSIA [None]
  - DYSPEPSIA [None]
  - PANCREATIC CYST [None]
  - PHARMACEUTICAL PRODUCT COMPLAINT [None]
  - RETCHING [None]
  - WHITE BLOOD CELL COUNT DECREASED [None]
